FAERS Safety Report 21701154 (Version 1)
Quarter: 2022Q4

REPORT INFORMATION
  Report Type: Spontaneous
  Country: US (occurrence: None)
  Receive Date: 20221207
  Receipt Date: 20221207
  Transmission Date: 20230113
  Serious: Yes (Other)
  Sender: FDA-Public Use
  Company Number: None

PATIENT
  Age: 21 Year
  Sex: Female
  Weight: 69 kg

DRUGS (2)
  1. OXYCODONE [Suspect]
     Active Substance: OXYCODONE
  2. DEVICE [Suspect]
     Active Substance: DEVICE
     Indication: Product used for unknown indication
     Route: 048

REACTIONS (5)
  - Somnolence [None]
  - Dysarthria [None]
  - Product packaging quantity issue [None]
  - Self-medication [None]
  - Extra dose administered [None]

NARRATIVE: CASE EVENT DATE: 20220715
